FAERS Safety Report 6636157-1 (Version None)
Quarter: 2010Q1

REPORT INFORMATION
  Report Type: 
  Country: None (occurrence: None)
  Receive Date: 20100316
  Receipt Date: 20100308
  Transmission Date: 20100710
  Serious: Yes (Hospitalization)
  Sender: FDA-Public Use
  Company Number: NL-SANOFI-AVENTIS-D01200807014

PATIENT
  Age: 67 Year
  Sex: Male
  Weight: 71.6 kg

DRUGS (9)
  1. OMBRABULIN [Suspect]
     Dosage: UNIT DOSE: 42 MG/M2
     Route: 041
     Dates: start: 20080918, end: 20080918
  2. OMBRABULIN [Suspect]
     Route: 041
     Dates: start: 20080828, end: 20080928
  3. DOCETAXEL [Suspect]
     Dosage: UNIT DOSE: 60 MG/M2
     Route: 041
     Dates: start: 20080919, end: 20080919
  4. PARACETAMOL [Concomitant]
     Route: 048
     Dates: start: 20080610
  5. ENALAPRIL MALEATE [Concomitant]
     Route: 048
     Dates: start: 20020101
  6. SIMVASTATIN [Concomitant]
     Route: 048
     Dates: start: 20020101
  7. OSCAL [Concomitant]
     Route: 048
     Dates: start: 20020101
  8. TRAMADOL HCL [Concomitant]
     Route: 048
     Dates: start: 20080801
  9. LORAZEPAM [Concomitant]
     Route: 048
     Dates: start: 20080701

REACTIONS (6)
  - BRONCHIAL FISTULA [None]
  - DECREASED APPETITE [None]
  - FATIGUE [None]
  - NAUSEA [None]
  - PNEUMONIA [None]
  - VOMITING [None]
